FAERS Safety Report 15367335 (Version 1)
Quarter: 2018Q3

REPORT INFORMATION
  Report Type: Spontaneous
  Country: BR (occurrence: BR)
  Receive Date: 20180910
  Receipt Date: 20180910
  Transmission Date: 20181010
  Serious: Yes (Other)
  Sender: FDA-Public Use
  Company Number: BR-SA-2017SA179944

PATIENT
  Sex: Female
  Weight: 72 kg

DRUGS (2)
  1. CLEXANE [Suspect]
     Active Substance: ENOXAPARIN SODIUM
     Indication: HYPERCOAGULATION
     Dosage: 40 MG,QD
     Route: 051
     Dates: start: 20170920
  2. ASPIRINA [Concomitant]
     Active Substance: ASPIRIN
     Route: 065

REACTIONS (4)
  - Labour pain [Unknown]
  - Exposure during pregnancy [Unknown]
  - Amniotic fluid volume decreased [Unknown]
  - Amniotic fluid volume [Unknown]
